FAERS Safety Report 6937303-2 (Version None)
Quarter: 2010Q3

REPORT INFORMATION
  Report Type: 
  Country: None (occurrence: None)
  Receive Date: 20100823
  Receipt Date: 20100818
  Transmission Date: 20110219
  Serious: Yes (Hospitalization)
  Sender: FDA-Public Use
  Company Number: Z0002534A

PATIENT
  Age: 64 Year
  Sex: Female
  Weight: 82.9 kg

DRUGS (13)
  1. LAPATINIB [Suspect]
     Dosage: 1500MG PER DAY
     Route: 048
     Dates: start: 20091119
  2. VINORELBINE [Suspect]
     Dosage: 20MGM2 CYCLIC
     Route: 042
     Dates: start: 20091119
  3. HEPARIN [Concomitant]
     Indication: ANTICOAGULANT THERAPY
     Dosage: 5000ML TWICE PER DAY
     Route: 058
     Dates: start: 20091206, end: 20091214
  4. FLAGYL [Concomitant]
     Dosage: 500MG THREE TIMES PER DAY
     Route: 048
     Dates: start: 20091206, end: 20091214
  5. PRILOSEC [Concomitant]
     Dosage: 20MG PER DAY
     Route: 048
     Dates: start: 20091206, end: 20091214
  6. VENTOLIN [Concomitant]
     Indication: CHRONIC OBSTRUCTIVE PULMONARY DISEASE
     Dosage: 3ML SIX TIMES PER DAY
     Route: 055
     Dates: start: 20091206, end: 20091214
  7. LEVOFLOXACIN [Concomitant]
     Dosage: 500MG PER DAY
     Route: 048
     Dates: start: 20091211, end: 20091214
  8. IMODIUM [Concomitant]
     Dosage: 2MG SIX TIMES PER DAY
     Route: 048
     Dates: start: 20091206, end: 20091214
  9. PROMETHAZINE [Concomitant]
     Indication: NAUSEA
     Dosage: 12.5MG FOUR TIMES PER DAY
     Route: 042
     Dates: start: 20091211, end: 20091214
  10. MORPHINE SULFATE [Concomitant]
     Indication: PAIN
     Dosage: 2MG SIX TIMES PER DAY
     Route: 042
     Dates: start: 20091206, end: 20091214
  11. MORPHINE SULFATE [Concomitant]
     Dosage: 4MG SIX TIMES PER DAY
     Route: 042
     Dates: start: 20091206, end: 20091214
  12. AMBIEN [Concomitant]
     Indication: INSOMNIA
     Dosage: 5MG AT NIGHT
     Route: 048
     Dates: start: 20091206, end: 20091214
  13. ALBUTEROL [Concomitant]
     Indication: CHRONIC OBSTRUCTIVE PULMONARY DISEASE
     Dosage: 3ML FOUR TIMES PER DAY
     Route: 055
     Dates: start: 20091210, end: 20091214

REACTIONS (4)
  - BLOOD CREATININE INCREASED [None]
  - HYPERKALAEMIA [None]
  - HYPONATRAEMIA [None]
  - NEUTROPENIA [None]
